FAERS Safety Report 11219144 (Version 1)
Quarter: 2015Q2

REPORT INFORMATION
  Report Type: Report from Study
  Country: CA (occurrence: CA)
  Receive Date: 20150625
  Receipt Date: 20150625
  Transmission Date: 20150821
  Serious: Yes (Other)
  Sender: FDA-Public Use
  Company Number: PHHY2014CA149732

PATIENT
  Age: 61 Year
  Sex: Male

DRUGS (3)
  1. SANDOSTATIN [Suspect]
     Active Substance: OCTREOTIDE ACETATE
     Indication: NEUROENDOCRINE TUMOUR
     Dosage: 200 UG, TID TO END 1 WEEK AFTER
     Route: 058
     Dates: start: 20140129, end: 201405
  2. SANDOSTATIN LAR DEPOT [Suspect]
     Active Substance: OCTREOTIDE ACETATE
     Indication: NEUROENDOCRINE TUMOUR
     Dosage: 30 MG, EVERY 4 WEEKS
     Route: 030
     Dates: start: 20140425, end: 20150422
  3. SANDOSTATIN LAR DEPOT [Suspect]
     Active Substance: OCTREOTIDE ACETATE
     Dosage: UNK
     Route: 065

REACTIONS (14)
  - Eating disorder [Unknown]
  - Decreased appetite [Unknown]
  - Syringe issue [Unknown]
  - Hernia [Unknown]
  - Dizziness [Unknown]
  - Underdose [Unknown]
  - Weight decreased [Unknown]
  - Gastrointestinal carcinoma [Unknown]
  - Malaise [Unknown]
  - Second primary malignancy [Unknown]
  - Flushing [Unknown]
  - Wrong technique in drug usage process [Unknown]
  - Abdominal pain [Unknown]
  - Blood pressure decreased [Unknown]

NARRATIVE: CASE EVENT DATE: 20141105
